FAERS Safety Report 15481214 (Version 3)
Quarter: 2025Q3

REPORT INFORMATION
  Report Type: Spontaneous
  Country: EU (occurrence: EU)
  Receive Date: 20181010
  Receipt Date: 20250726
  Transmission Date: 20251020
  Serious: Yes (Life-Threatening, Other)
  Sender: AUROBINDO
  Company Number: EU-AUROBINDO-AUR-APL-2018-048828

PATIENT
  Age: 47 Year
  Sex: Male

DRUGS (6)
  1. MEROPENEM [Suspect]
     Active Substance: MEROPENEM
     Indication: Urosepsis
     Route: 065
  2. MEROPENEM [Suspect]
     Active Substance: MEROPENEM
     Indication: Sepsis
  3. EPINEPHRINE [Concomitant]
     Active Substance: EPINEPHRINE
     Indication: Sepsis
     Route: 030
  4. EPINEPHRINE [Concomitant]
     Active Substance: EPINEPHRINE
     Indication: Urosepsis
  5. NOREPINEPHRINE BITARTRATE [Concomitant]
     Active Substance: NOREPINEPHRINE BITARTRATE
     Indication: Sepsis
     Route: 065
  6. NOREPINEPHRINE BITARTRATE [Concomitant]
     Active Substance: NOREPINEPHRINE BITARTRATE
     Indication: Urosepsis

REACTIONS (7)
  - Anaphylactic shock [Recovering/Resolving]
  - Type III immune complex mediated reaction [Unknown]
  - Dermatitis exfoliative generalised [Unknown]
  - Dyspnoea [Unknown]
  - Wheezing [Unknown]
  - Hypotension [Unknown]
  - Pruritus [Unknown]
